FAERS Safety Report 13508182 (Version 2)
Quarter: 2017Q2

REPORT INFORMATION
  Report Type: Spontaneous
  Country: NL (occurrence: NL)
  Receive Date: 20170503
  Receipt Date: 20170512
  Transmission Date: 20170830
  Serious: Yes (Hospitalization, Disabling)
  Sender: FDA-Public Use
  Company Number: NL-B.I. PHARMACEUTICALS,INC./RIDGEFIELD-2017-BI-023724

PATIENT
  Sex: Male
  Weight: 87 kg

DRUGS (1)
  1. PRADAXA [Suspect]
     Active Substance: DABIGATRAN ETEXILATE MESYLATE
     Indication: ATRIAL FIBRILLATION
     Dosage: ADMINISTRATION CORRECT: NO; MEDICATION ERROR
     Route: 048
     Dates: start: 20160701, end: 20170309

REACTIONS (2)
  - Procedural haemorrhage [Not Recovered/Not Resolved]
  - Blindness unilateral [Not Recovered/Not Resolved]
